FAERS Safety Report 19030861 (Version 1)
Quarter: 2021Q1

REPORT INFORMATION
  Report Type: Spontaneous
  Country: IN (occurrence: IN)
  Receive Date: 20210319
  Receipt Date: 20210319
  Transmission Date: 20210420
  Serious: No
  Sender: FDA-Public Use
  Company Number: None

PATIENT
  Age: 20 Year
  Sex: Male
  Weight: 75 kg

DRUGS (2)
  1. MINOXIDIL. [Suspect]
     Active Substance: MINOXIDIL
     Dates: start: 20210311, end: 20210316
  2. MINOXIDIL TOPICAL I [Suspect]
     Active Substance: MINOXIDIL
     Indication: HYPERTRICHOSIS
     Route: 061
     Dates: start: 20210311, end: 20210316

REACTIONS (8)
  - Self esteem decreased [None]
  - Quality of life decreased [None]
  - Semen analysis abnormal [None]
  - Anxiety [None]
  - Erectile dysfunction [None]
  - Libido decreased [None]
  - Anorgasmia [None]
  - Depression [None]

NARRATIVE: CASE EVENT DATE: 20210314
